FAERS Safety Report 5720953-9 (Version None)
Quarter: 2008Q2

REPORT INFORMATION
  Report Type: 
  Country: None (occurrence: None)
  Receive Date: 20080425
  Receipt Date: 20080425
  Transmission Date: 20081010
  Serious: Yes (Other)
  Sender: FDA-Public Use
  Company Number: None

PATIENT
  Sex: Male
  Weight: 69.4003 kg

DRUGS (2)
  1. VORICONAZOLE PFIZER [Suspect]
     Indication: MENINGITIS COCCIDIOIDES
     Dosage: 400MG TWICE DAILY PO
     Route: 048
  2. INTERFERON ROCHE [Suspect]
     Indication: HEPATITIS C
     Dosage: 1.5MG/KG ONCE WEEKLY SQ
     Route: 058

REACTIONS (1)
  - SQUAMOUS CELL CARCINOMA [None]
